FAERS Safety Report 8828533 (Version 3)
Quarter: 2012Q4

REPORT INFORMATION
  Report Type: 
  Country: JP (occurrence: JP)
  Receive Date: 20121005
  Receipt Date: 20121210
  Transmission Date: 20130627
  Serious: Yes (Life-Threatening, Disabling, Other)
  Sender: FDA-Public Use
  Company Number: JP-B.I. PHARMACEUTICALS,INC./RIDGEFIELD-2012-BP-23864NB

PATIENT
  Age: 75 Year
  Sex: Male

DRUGS (6)
  1. PRAZAXA [Suspect]
     Indication: ATRIAL FIBRILLATION
     Dosage: 220 mg
     Route: 048
     Dates: end: 20120928
  2. PRIMPERAN [Concomitant]
     Dosage: 15 mg
     Route: 065
     Dates: end: 20120928
  3. TAKEPRON [Concomitant]
     Dosage: 15 mg
     Route: 065
     Dates: end: 20120928
  4. TSUMURA DAIKENCHUTO [Concomitant]
     Dosage: 7.5 mg
     Route: 065
     Dates: end: 20120928
  5. PURSENNID [Concomitant]
     Dosage: 24 mg
     Route: 065
     Dates: end: 20120928
  6. MAGMITT [Concomitant]
     Dosage: 1320 mg
     Route: 065
     Dates: end: 20120928

REACTIONS (3)
  - Cerebral infarction [Recovered/Resolved with Sequelae]
  - Carotid artery occlusion [Recovered/Resolved with Sequelae]
  - Pulmonary embolism [Recovered/Resolved with Sequelae]
